FAERS Safety Report 5248152-8 (Version None)
Quarter: 2007Q1

REPORT INFORMATION
  Report Type: 
  Country: None (occurrence: None)
  Receive Date: 20070227
  Receipt Date: 20060412
  Transmission Date: 20070707
  Serious: No
  Sender: FDA-Public Use
  Company Number: US-BRISTOL-MYERS SQUIBB COMPANY-13328448

PATIENT
  Age: 73 Year
  Sex: Female
  Weight: 68 kg

DRUGS (5)
  1. GLUCOPHAGE [Suspect]
     Indication: DIABETES MELLITUS
     Dates: start: 20060320
  2. INDERAL [Concomitant]
  3. PLETAL [Concomitant]
  4. ALPHAGAN [Concomitant]
  5. LUMIGAN [Concomitant]

REACTIONS (2)
  - FATIGUE [None]
  - LISTLESS [None]
